FAERS Safety Report 25037534 (Version 2)
Quarter: 2025Q1

REPORT INFORMATION
  Report Type: Spontaneous
  Country: IL (occurrence: None)
  Receive Date: 20250304
  Receipt Date: 20250317
  Transmission Date: 20250409
  Serious: Yes (Other)
  Sender: INCYTE
  Company Number: IL-INCYTE CORPORATION-2025IN002356

PATIENT

DRUGS (2)
  1. RUXOLITINIB [Suspect]
     Active Substance: RUXOLITINIB
     Indication: Myelofibrosis
     Dosage: 20 MILLIGRAM, BID
  2. PELABRESIB [Suspect]
     Active Substance: PELABRESIB
     Indication: Myelofibrosis
     Dosage: 125 MILLIGRAM, QD

REACTIONS (1)
  - Basal cell carcinoma [Not Recovered/Not Resolved]
